FAERS Safety Report 5465664-2 (Version None)
Quarter: 2007Q3

REPORT INFORMATION
  Report Type: 
  Country: None (occurrence: None)
  Receive Date: 20070924
  Receipt Date: 20070911
  Transmission Date: 20080115
  Serious: Yes (Death)
  Sender: FDA-Public Use
  Company Number: GB-BAUSCH-2007BL002913

PATIENT
  Age: 53 Year
  Sex: Male

DRUGS (9)
  1. GENTAMICIN SULFATE [Suspect]
     Indication: SEPSIS
  2. AUGMENTIN [Suspect]
     Indication: SEPSIS
  3. LEVOFLOXACIN [Suspect]
     Indication: SEPSIS
  4. METRONIDAZOLE [Suspect]
     Indication: SEPSIS
  5. PARACETAMOL [Suspect]
     Indication: ANALGESIA
  6. VANCOMYCIN [Suspect]
     Indication: SEPSIS
  7. DICLOFENAC [Concomitant]
     Indication: ANALGESIA
  8. METOCLOPRAMIDE [Concomitant]
  9. OMEPRAZOLE [Concomitant]

REACTIONS (3)
  - DISORIENTATION [None]
  - METABOLIC ACIDOSIS [None]
  - MYOCARDIAL INFARCTION [None]
